FAERS Safety Report 10531319 (Version 1)
Quarter: 2014Q4

REPORT INFORMATION
  Report Type: Report from Study
  Country: US (occurrence: US)
  Receive Date: 20141021
  Receipt Date: 20141021
  Transmission Date: 20150529
  Serious: Yes (Hospitalization)
  Sender: FDA-Public Use
  Company Number: PHEH2014US020535

PATIENT
  Age: 41 Year
  Sex: Female

DRUGS (2)
  1. CLOZARIL [Suspect]
     Active Substance: CLOZAPINE
     Dosage: 350 MG, QD
     Route: 065
  2. CLOZARIL [Suspect]
     Active Substance: CLOZAPINE
     Indication: PRODUCT USED FOR UNKNOWN INDICATION
     Dosage: 300 MG, QD
     Route: 065

REACTIONS (6)
  - Screaming [Unknown]
  - Crying [Unknown]
  - Hypersexuality [Unknown]
  - Agitation [Unknown]
  - Schizophrenia [Unknown]
  - Neutrophil percentage decreased [Recovered/Resolved]

NARRATIVE: CASE EVENT DATE: 20141007
